FAERS Safety Report 21177576 (Version 3)
Quarter: 2022Q3

REPORT INFORMATION
  Report Type: Spontaneous
  Country: JP (occurrence: JP)
  Receive Date: 20220805
  Receipt Date: 20220921
  Transmission Date: 20221027
  Serious: Yes (Hospitalization)
  Sender: FDA-Public Use
  Company Number: JP-PFIZER INC-202201022100

PATIENT
  Age: 80 Year
  Sex: Male
  Weight: 44.2 kg

DRUGS (3)
  1. PAXLOVID [Suspect]
     Active Substance: NIRMATRELVIR\RITONAVIR
     Indication: COVID-19 treatment
     Dosage: [PF-07321332 300 MG]/[RITONAVIR 100 MG]; 2X/DAY
     Route: 048
     Dates: start: 20220725, end: 20220730
  2. CELECOXIB [Concomitant]
     Active Substance: CELECOXIB
     Indication: Postoperative analgesia
     Dosage: 100 MG, 2X/DAY
     Route: 048
     Dates: start: 20220717, end: 20220811
  3. FAMOTIDINE [Concomitant]
     Active Substance: FAMOTIDINE
     Indication: Gastric ulcer
     Dosage: 20 MG, 2X/DAY
     Route: 048
     Dates: start: 20220717, end: 20220811

REACTIONS (4)
  - Erythema [Recovering/Resolving]
  - Rash macular [Recovering/Resolving]
  - Pruritus [Recovering/Resolving]
  - Platelet count increased [Unknown]

NARRATIVE: CASE EVENT DATE: 20220729
